FAERS Safety Report 22294464 (Version 1)
Quarter: 2023Q2

REPORT INFORMATION
  Report Type: Spontaneous
  Country: US (occurrence: US)
  Receive Date: 20230508
  Receipt Date: 20230508
  Transmission Date: 20230722
  Serious: No
  Sender: FDA-Public Use
  Company Number: US-ASTELLAS-2023US001003

PATIENT

DRUGS (4)
  1. LEXISCAN [Suspect]
     Active Substance: REGADENOSON
     Indication: Product used for unknown indication
     Dosage: UNK, UNKNOWN FREQ. (0.08MG/ML, 5ML ANSYR SYRINGE )(STRENGTH 0.4MG/5ML)
     Route: 065
  2. LEXISCAN [Suspect]
     Active Substance: REGADENOSON
     Indication: Product used for unknown indication
     Dosage: UNK, UNKNOWN FREQ. (0.08MG/ML, 5ML ANSYR SYRINGE )(STRENGTH 0.4MG/5ML)
     Route: 065
  3. LEXISCAN [Suspect]
     Active Substance: REGADENOSON
     Indication: Product used for unknown indication
     Dosage: UNK, UNKNOWN FREQ. (0.08MG/ML, 5ML ANSYR SYRINGE )(STRENGTH 0.4MG/5ML)
     Route: 065
  4. LEXISCAN [Suspect]
     Active Substance: REGADENOSON
     Indication: Product used for unknown indication
     Dosage: UNK, UNKNOWN FREQ. (0.08MG/ML, 5ML ANSYR SYRINGE )(STRENGTH 0.4MG/5ML)
     Route: 065

REACTIONS (2)
  - Physical product label issue [Unknown]
  - Liquid product physical issue [Unknown]
